FAERS Safety Report 7317432-4 (Version None)
Quarter: 2011Q1

REPORT INFORMATION
  Report Type: 
  Country: None (occurrence: None)
  Receive Date: 20110226
  Receipt Date: 20101102
  Transmission Date: 20110831
  Serious: No
  Sender: FDA-Public Use
  Company Number: US-ALLERGAN-1014060US

PATIENT
  Age: 31 Year
  Sex: Female

DRUGS (1)
  1. BOTOX COSMETIC [Suspect]
     Indication: SKIN WRINKLING
     Dosage: 30 UNITS, SINGLE
     Route: 030
     Dates: start: 20101005, end: 20101005

REACTIONS (8)
  - NAUSEA [None]
  - CHILLS [None]
  - ANXIETY [None]
  - HYPOAESTHESIA FACIAL [None]
  - PHARYNGEAL OEDEMA [None]
  - MUSCULAR WEAKNESS [None]
  - EYE MOVEMENT DISORDER [None]
  - VISION BLURRED [None]
